FAERS Safety Report 24168000 (Version 2)
Quarter: 2024Q4

REPORT INFORMATION
  Report Type: Spontaneous
  Country: US (occurrence: US)
  Receive Date: 20240802
  Receipt Date: 20241110
  Transmission Date: 20250114
  Serious: No
  Sender: SANOFI AVENTIS
  Company Number: US-SA-SAC20240730000192

PATIENT
  Age: 69 Year
  Sex: Female
  Weight: 111.13 kg

DRUGS (1)
  1. DUPIXENT [Suspect]
     Active Substance: DUPILUMAB
     Indication: Dermatitis atopic
     Dosage: 300 MG, QOW
     Route: 058
     Dates: start: 20240606

REACTIONS (7)
  - Fibromyalgia [Not Recovered/Not Resolved]
  - Oral herpes [Recovered/Resolved]
  - Dermatitis atopic [Unknown]
  - Skin exfoliation [Unknown]
  - Rash erythematous [Unknown]
  - Arthralgia [Unknown]
  - Injection site pain [Unknown]

NARRATIVE: CASE EVENT DATE: 20240101
